FAERS Safety Report 8288719-6 (Version None)
Quarter: 2012Q2

REPORT INFORMATION
  Report Type: 
  Country: None (occurrence: None)
  Receive Date: 20120417
  Receipt Date: 20120406
  Transmission Date: 20120825
  Serious: No
  Sender: FDA-Public Use
  Company Number: US-BIOGENIDEC-2011BI044484

PATIENT
  Age: 20 Year
  Sex: Female

DRUGS (1)
  1. TYSABRI [Suspect]
     Indication: MULTIPLE SCLEROSIS
     Route: 042
     Dates: start: 20111010

REACTIONS (3)
  - RASH PRURITIC [None]
  - SINUS DISORDER [None]
  - INFUSION RELATED REACTION [None]
